FAERS Safety Report 24792590 (Version 1)
Quarter: 2024Q4

REPORT INFORMATION
  Report Type: Spontaneous
  Country: US (occurrence: US)
  Receive Date: 20241231
  Receipt Date: 20241231
  Transmission Date: 20250114
  Serious: Yes (Hospitalization, Other)
  Sender: Haleon PLC
  Company Number: US-HALEON-2219344

PATIENT
  Age: 46 Year
  Sex: Male

DRUGS (2)
  1. ACETAMINOPHEN [Suspect]
     Active Substance: ACETAMINOPHEN
     Indication: Oral pain
     Dosage: ONE HUNDRED TABLETS OF ACETAMINOPHEN 500 MG DURING THE 4 DAYS
     Route: 048
  2. CLINDAMYCIN [Concomitant]
     Active Substance: CLINDAMYCIN
     Indication: Sialoadenitis
     Route: 048

REACTIONS (9)
  - Liver injury [Unknown]
  - Accidental overdose [Unknown]
  - Decreased appetite [Unknown]
  - Fatigue [Unknown]
  - Nausea [Unknown]
  - Vomiting [Unknown]
  - Abdominal tenderness [Unknown]
  - Leukocytosis [Unknown]
  - Toxicity to various agents [Unknown]
